FAERS Safety Report 22117016 (Version 4)
Quarter: 2023Q2

REPORT INFORMATION
  Report Type: Spontaneous
  Country: GB (occurrence: GB)
  Receive Date: 20230320
  Receipt Date: 20230424
  Transmission Date: 20230722
  Serious: Yes (Death, Hospitalization, Other)
  Sender: FDA-Public Use
  Company Number: None

PATIENT
  Age: 50 Year
  Sex: Male
  Weight: 95 kg

DRUGS (17)
  1. OMNIPAQUE [Suspect]
     Active Substance: IOHEXOL
     Indication: Computerised tomogram liver
     Dosage: 90 ML AT 4 ML/SEC, ONCE
     Route: 042
     Dates: start: 20230304, end: 20230304
  2. OMNIPAQUE [Suspect]
     Active Substance: IOHEXOL
     Indication: Hepatic cirrhosis
  3. SALINE [Concomitant]
     Active Substance: SODIUM CHLORIDE
     Indication: Catheter management
     Dosage: 30 ML, VIA PUMP, ONCE
     Route: 042
     Dates: start: 20230304, end: 20230304
  4. PROPRANOLOL [Concomitant]
     Active Substance: PROPRANOLOL HYDROCHLORIDE
     Dosage: 10 MG, TID
  5. RIVAROXABAN [Concomitant]
     Active Substance: RIVAROXABAN
     Dosage: 20 MG, QD
  6. Aymes complete [Concomitant]
     Dosage: 2.0 KCAL, 200ML, TWICE DAILY
  7. FOLIC ACID [Concomitant]
     Active Substance: FOLIC ACID
     Dosage: 5 MG, QD
  8. SPIRONOLACTONE [Concomitant]
     Active Substance: SPIRONOLACTONE
     Dosage: 100 MG, QD
  9. ATORVASTATIN [Concomitant]
     Active Substance: ATORVASTATIN
     Dosage: 40 MG, AT NIGHT
  10. LAMOTRIGINE [Concomitant]
     Active Substance: LAMOTRIGINE
     Dosage: 100 MG, QD
  11. MIRTAZAPINE [Concomitant]
     Active Substance: MIRTAZAPINE
     Dosage: 45 MG, AT NIGHT
  12. OMEPRAZOLE [Concomitant]
     Active Substance: OMEPRAZOLE
     Dosage: 20 MG, QD
  13. FLUTICASONE FUROATE\VILANTEROL TRIFENATATE [Concomitant]
     Active Substance: FLUTICASONE FUROATE\VILANTEROL TRIFENATATE
     Dosage: 92/22 MCG, THREE TIMES PER DAY
  14. SPIRIVA RESPIMAT [Concomitant]
     Active Substance: TIOTROPIUM BROMIDE
     Dosage: 2.5 MCG, TID
  15. THIAMINE [Concomitant]
     Active Substance: THIAMINE
     Dosage: 100 MG, QD
  16. ALBUTEROL [Concomitant]
     Active Substance: ALBUTEROL
     Dosage: UNK, PRN
  17. COCODAMOL [Concomitant]
     Active Substance: ACETAMINOPHEN\CODEINE PHOSPHATE
     Dosage: 30/500 MG 1-2, THREE TIMES PER DAY AS NEEDED

REACTIONS (6)
  - Cardiac arrest [Fatal]
  - Aggression [Unknown]
  - Agitation [Unknown]
  - Circulatory collapse [Unknown]
  - Anaphylactic reaction [Unknown]
  - Contrast media reaction [Unknown]

NARRATIVE: CASE EVENT DATE: 20230304
